FAERS Safety Report 7860614-3 (Version None)
Quarter: 2011Q4

REPORT INFORMATION
  Report Type: 
  Country: None (occurrence: None)
  Receive Date: 20111027
  Receipt Date: 20111018
  Transmission Date: 20120403
  Serious: Yes (Hospitalization)
  Sender: FDA-Public Use
  Company Number: US-ASTRAZENECA-2011SE50570

PATIENT
  Age: 63 Year
  Sex: Female

DRUGS (10)
  1. SPIRIVA [Concomitant]
  2. PROAIR AERIVAX [Concomitant]
     Dosage: 2 PUFFS FOUR TIMES DAILY
  3. ATIVAN [Concomitant]
  4. PULMICORT FLEXHALER [Suspect]
     Route: 055
  5. LISINOPRIL [Concomitant]
  6. SIMVASTATIN [Concomitant]
  7. CITALOPRAM HYDROBROMIDE [Concomitant]
  8. CARVEDILOL [Concomitant]
  9. MIRTAZAPINE [Concomitant]
  10. PAROXETINE HCL [Concomitant]

REACTIONS (3)
  - CHRONIC OBSTRUCTIVE PULMONARY DISEASE [None]
  - HEART INJURY [None]
  - LUNG DISORDER [None]
